FAERS Safety Report 6329353-4 (Version None)
Quarter: 2009Q3

REPORT INFORMATION
  Report Type: 
  Country: None (occurrence: None)
  Receive Date: 20090826
  Receipt Date: 20090820
  Transmission Date: 20100115
  Serious: Yes (Hospitalization)
  Sender: FDA-Public Use
  Company Number: US-JNJFOC-20090807411

PATIENT
  Sex: Female
  Weight: 58.97 kg

DRUGS (8)
  1. DURAGESIC-100 [Suspect]
     Indication: ARTHRALGIA
     Route: 062
  2. MELOXICAM [Concomitant]
     Indication: ARTHRALGIA
     Route: 048
  3. HYZUM [Concomitant]
     Indication: HYPERTENSION
     Dosage: 100 MG/12.5 MG
     Route: 048
  4. FUROSEMIDE [Concomitant]
     Indication: FLUID RETENTION
     Dosage: AS NECESSARY
     Route: 048
  5. KLOR-CON [Concomitant]
     Indication: BLOOD POTASSIUM DECREASED
     Dosage: AS NEEDED
     Route: 048
  6. METOPROLOL [Concomitant]
     Indication: HYPERTENSION
     Route: 048
  7. CARISOPRODOL [Concomitant]
     Indication: MUSCLE SPASMS
     Route: 048
  8. PREMARIN [Concomitant]
     Indication: HORMONE REPLACEMENT THERAPY
     Route: 065

REACTIONS (2)
  - CAROTID ARTERY OCCLUSION [None]
  - INAPPROPRIATE SCHEDULE OF DRUG ADMINISTRATION [None]
